FAERS Safety Report 6014208-5 (Version None)
Quarter: 2008Q4

REPORT INFORMATION
  Report Type: 
  Country: None (occurrence: None)
  Receive Date: 20081219
  Receipt Date: 20080213
  Transmission Date: 20090506
  Serious: No
  Sender: FDA-Public Use
  Company Number: A0709399A

PATIENT
  Age: 63 Year
  Sex: Male

DRUGS (5)
  1. AVODART [Suspect]
     Dosage: 1CAP PER DAY
     Route: 048
     Dates: start: 20071001
  2. DOXAZOSIN MESYLATE [Concomitant]
  3. VITAMIN E [Concomitant]
  4. CENTRUM [Concomitant]
  5. ASPIRIN [Concomitant]

REACTIONS (1)
  - ANORECTAL DISCOMFORT [None]
